FAERS Safety Report 5922264-5 (Version None)
Quarter: 2008Q4

REPORT INFORMATION
  Report Type: 
  Country: None (occurrence: None)
  Receive Date: 20081017
  Receipt Date: 20081007
  Transmission Date: 20090506
  Serious: Yes (Hospitalization)
  Sender: FDA-Public Use
  Company Number: US-AVENTIS-200718369US

PATIENT
  Sex: Male
  Weight: 102 kg

DRUGS (26)
  1. KETEK [Suspect]
     Dosage: DOSE: UNK
     Dates: start: 20050402
  2. ZOCOR [Suspect]
     Dates: end: 20050101
  3. TEQUIN [Suspect]
     Dosage: DOSE: UNK
     Dates: start: 20050401
  4. HYDROCODONE BITARTRATE [Suspect]
     Indication: COUGH
     Dosage: DOSE: UNK
     Dates: start: 20050401
  5. TRICOR                             /00090101/ [Concomitant]
     Route: 048
  6. INSULIN [Concomitant]
     Dosage: DOSE: UNK
  7. COUMADIN [Concomitant]
     Dosage: DOSE: UNK
  8. LABETOLOL [Concomitant]
     Route: 048
  9. ALLOPURINOL [Concomitant]
     Route: 048
  10. ACTOS [Concomitant]
     Route: 048
  11. NITROSTAT [Concomitant]
     Indication: CHEST PAIN
  12. MECLIZINE [Concomitant]
     Dosage: DOSE: 25 MG PO DAILY PRN
     Route: 048
  13. VITAMIN B NOS [Concomitant]
     Dosage: DOSE: UNK
  14. VITAMIN E [Concomitant]
     Dosage: DOSE: UNK
  15. FLONASE [Concomitant]
     Dosage: DOSE: 2 SPAYS EACH NOSTRIL
  16. AMIODARONE HCL [Concomitant]
     Route: 048
  17. HYZAAR [Concomitant]
     Dosage: DOSE: 100 / 25 1 TABLET DAILY
     Route: 048
  18. ISOSORBIDE MONONITRATE [Concomitant]
     Route: 048
  19. TRIAMTERENE [Concomitant]
     Dosage: DOSE: UNK
  20. HYDROCHLOROTHIAZIDE [Concomitant]
     Dosage: DOSE: 37.5 / 25
     Route: 048
  21. HUMULINE                           /00806401/ [Concomitant]
     Dosage: DOSE: UNK
  22. RESTORIL                           /00393701/ [Concomitant]
     Dosage: DOSE: 50 MG PO HS PRN FOR 13 DAYS
     Route: 048
  23. ANTIBIOTICS [Concomitant]
     Dosage: DOSE: UNK
  24. FLAGYL [Concomitant]
     Dosage: DOSE: UNK
  25. POTASSIUM CHLORIDE [Concomitant]
     Dosage: DOSE: UNK
  26. PHOSPHORUS [Concomitant]
     Dosage: DOSE: UNK

REACTIONS (19)
  - ABDOMINAL PAIN [None]
  - ASTHENIA [None]
  - BALANCE DISORDER [None]
  - DECUBITUS ULCER [None]
  - ENCEPHALOPATHY [None]
  - GENERALISED OEDEMA [None]
  - HEPATITIS ACUTE [None]
  - HYPOTENSION [None]
  - INTERNATIONAL NORMALISED RATIO INCREASED [None]
  - JAUNDICE [None]
  - LABORATORY TEST ABNORMAL [None]
  - LETHARGY [None]
  - LEUKOCYTOSIS [None]
  - LIVER FUNCTION TEST ABNORMAL [None]
  - METABOLIC ACIDOSIS [None]
  - NAUSEA [None]
  - PANCREATITIS [None]
  - RENAL FAILURE ACUTE [None]
  - RESPIRATORY FAILURE [None]
